FAERS Safety Report 10929702 (Version 1)
Quarter: 2015Q1

REPORT INFORMATION
  Report Type: Spontaneous
  Country: DE (occurrence: DE)
  Receive Date: 20150319
  Receipt Date: 20150319
  Transmission Date: 20150721
  Serious: Yes (Hospitalization, Other)
  Sender: FDA-Public Use
  Company Number: DE-PFIZER INC-2015060104

PATIENT
  Age: 75 Year
  Sex: Male
  Weight: 71 kg

DRUGS (5)
  1. ESOMEPRAZOLE [Concomitant]
     Active Substance: ESOMEPRAZOLE
     Dosage: 20 UNK, 1X/DAY (IN THE MORNING)
  2. CAVERJECT [Suspect]
     Active Substance: ALPROSTADIL
     Dosage: 2.5 ?G, ONCE EVERY 14 DAYS
  3. BRONCHORETARD [Concomitant]
     Dosage: 200 (IN THE MORNING) AND 375 (IN THE EVENING)
  4. ANDROCUR [Concomitant]
     Active Substance: CYPROTERONE ACETATE
     Dosage: 50 UNK, 1X/DAY (IN THE MORNING)
     Dates: start: 2002
  5. SYMBICORT [Concomitant]
     Active Substance: BUDESONIDE\FORMOTEROL FUMARATE DIHYDRATE
     Dosage: 160/4.5-2-0-2 PUMPS

REACTIONS (3)
  - Chest discomfort [Unknown]
  - Pulmonary embolism [Unknown]
  - Erection increased [Unknown]
